FAERS Safety Report 14117348 (Version 1)
Quarter: 2017Q4

REPORT INFORMATION
  Report Type: Spontaneous
  Country: TW (occurrence: TW)
  Receive Date: 20171023
  Receipt Date: 20171023
  Transmission Date: 20180321
  Serious: Yes (Hospitalization)
  Sender: FDA-Public Use
  Company Number: TW-ALLERGAN-1759635US

PATIENT
  Age: 82 Year
  Sex: Male

DRUGS (5)
  1. CLINDAMYCIN. [Concomitant]
     Active Substance: CLINDAMYCIN
     Dosage: UNK
     Route: 065
     Dates: start: 20170421
  2. OXACILLIN [Concomitant]
     Active Substance: OXACILLIN SODIUM
     Dosage: UNK
     Route: 065
     Dates: start: 20170421, end: 20170509
  3. SILODOSIN - BP [Suspect]
     Active Substance: SILODOSIN
     Indication: DYSURIA
     Dosage: UNK
     Route: 048
     Dates: start: 20170422, end: 20170516
  4. GABAPENTIN. [Suspect]
     Active Substance: GABAPENTIN
     Indication: DYSURIA
     Dosage: UNK
     Route: 048
     Dates: start: 20170422, end: 20170516
  5. FUROSEMIDE. [Suspect]
     Active Substance: FUROSEMIDE
     Indication: DYSURIA
     Dosage: UNK
     Route: 048
     Dates: start: 20170422, end: 20170516

REACTIONS (1)
  - Drug reaction with eosinophilia and systemic symptoms [Recovered/Resolved]

NARRATIVE: CASE EVENT DATE: 20170501
